FAERS Safety Report 7625879-1 (Version None)
Quarter: 2011Q3

REPORT INFORMATION
  Report Type: 
  Country: None (occurrence: None)
  Receive Date: 20110713
  Receipt Date: 20110425
  Transmission Date: 20111222
  Serious: Yes (Life-Threatening, Hospitalization)
  Sender: FDA-Public Use
  Company Number: DSA_45449_2011

PATIENT
  Age: 81 Year
  Sex: Male

DRUGS (6)
  1. AMIODARONE HCL [Suspect]
     Indication: ATRIAL FIBRILLATION
     Dosage: (200 MG QD ORAL) ; (600 MG WEEKLY ORAL)
     Route: 048
     Dates: start: 20090219, end: 20100119
  2. PARAPRES [Concomitant]
  3. METFORMIN HCL [Concomitant]
  4. DILTIAZEM HCL [Suspect]
     Indication: ATRIAL FIBRILLATION
     Dosage: (120 MG QD ORAL)
     Route: 048
     Dates: end: 20100109
  5. ALLOPURINOL [Concomitant]
  6. FUROSEMIDE [Concomitant]

REACTIONS (3)
  - DRUG INTERACTION [None]
  - ATRIOVENTRICULAR BLOCK [None]
  - BUNDLE BRANCH BLOCK RIGHT [None]
